FAERS Safety Report 8363079-0 (Version None)
Quarter: 2012Q2

REPORT INFORMATION
  Report Type: 
  Country: None (occurrence: None)
  Receive Date: 20120516
  Receipt Date: 20111020
  Transmission Date: 20120825
  Serious: Yes (Hospitalization)
  Sender: FDA-Public Use
  Company Number: US-ALEXION PHARMACEUTICALS INC.-A201101471

PATIENT
  Sex: Male
  Weight: 91.61 kg

DRUGS (3)
  1. SOLIRIS [Suspect]
     Indication: PAROXYSMAL NOCTURNAL HAEMOGLOBINURIA
     Dosage: 600 MG, UNK
     Route: 042
     Dates: start: 20110520
  2. LOVENOX [Concomitant]
     Dosage: 90 MG, BID
     Dates: start: 20110201
  3. SOLIRIS [Suspect]
     Dosage: 900 MG, UNK
     Route: 042
     Dates: start: 20110617

REACTIONS (2)
  - CONDITION AGGRAVATED [None]
  - DEEP VEIN THROMBOSIS [None]
